FAERS Safety Report 7703835-2 (Version None)
Quarter: 2011Q3

REPORT INFORMATION
  Report Type: 
  Country: None (occurrence: None)
  Receive Date: 20110823
  Receipt Date: 20110816
  Transmission Date: 20111222
  Serious: Yes (Hospitalization, Other)
  Sender: FDA-Public Use
  Company Number: EG-ROCHE-797020

PATIENT
  Sex: Male

DRUGS (3)
  1. AVASTIN [Suspect]
     Route: 042
     Dates: start: 20110601, end: 20110801
  2. CISPLATIN [Concomitant]
  3. GEMCITABINE [Concomitant]

REACTIONS (2)
  - HAEMATOMA [None]
  - HALLUCINATION, VISUAL [None]
